FAERS Safety Report 4679940-4 (Version None)
Quarter: 2005Q2

REPORT INFORMATION
  Report Type: 
  Country: None (occurrence: None)
  Receive Date: 20050531
  Receipt Date: 20050519
  Transmission Date: 20051028
  Serious: Yes (Life-Threatening)
  Sender: FDA-Public Use
  Company Number: B0382165A

PATIENT
  Age: 61 Year
  Sex: Male

DRUGS (8)
  1. AUGMENTIN [Suspect]
     Indication: PROPHYLAXIS
     Dosage: 1 GRAM (S) /SINGLE DOSE /  INTRAVENOUS
     Route: 042
     Dates: start: 20050408, end: 20050408
  2. CISATRACURIUM BESYLATE [Concomitant]
  3. MIDAZOLAM HYDROCHLORIDE [Concomitant]
  4. PROPOFOL [Concomitant]
  5. SUFENTANIL CITRATE [Concomitant]
  6. COAPROVEL [Concomitant]
  7. PRAVASTATIN SODIUM [Concomitant]
  8. ACARBOSE [Concomitant]

REACTIONS (1)
  - ANAPHYLACTIC SHOCK [None]
